FAERS Safety Report 19259531 (Version 1)
Quarter: 2021Q2

REPORT INFORMATION
  Report Type: Spontaneous
  Country: US (occurrence: US)
  Receive Date: 20210514
  Receipt Date: 20210514
  Transmission Date: 20210717
  Serious: Yes (Death)
  Sender: FDA-Public Use
  Company Number: US-PFIZER INC-2020113447

PATIENT
  Age: 80 Year
  Sex: Female

DRUGS (2)
  1. XALKORI [Suspect]
     Active Substance: CRIZOTINIB
     Indication: LUNG NEOPLASM MALIGNANT
     Dosage: 250 MG, UNK
  2. XALKORI [Suspect]
     Active Substance: CRIZOTINIB
     Dosage: 200 MG

REACTIONS (2)
  - Product dispensing error [Unknown]
  - Death [Fatal]
